FAERS Safety Report 10586188 (Version 1)
Quarter: 2014Q4

REPORT INFORMATION
  Report Type: Spontaneous
  Country: US (occurrence: US)
  Receive Date: 20141116
  Receipt Date: 20141116
  Transmission Date: 20150529
  Serious: Yes (Other)
  Sender: FDA-Public Use
  Company Number: US-SA-2014SA155504

PATIENT
  Age: 92 Year
  Sex: Male

DRUGS (13)
  1. PLAVIX [Suspect]
     Active Substance: CLOPIDOGREL BISULFATE
     Route: 065
  2. TAMSULOSIN HYDROCHLORIDE. [Concomitant]
     Active Substance: TAMSULOSIN HYDROCHLORIDE
  3. COREG [Concomitant]
     Active Substance: CARVEDILOL
  4. CALCIUM [Concomitant]
     Active Substance: CALCIUM
  5. VITAMIN B [Concomitant]
     Active Substance: VITAMIN B
  6. VITAMIN D3 [Concomitant]
     Active Substance: CHOLECALCIFEROL
  7. ENZALUTAMIDE [Suspect]
     Active Substance: ENZALUTAMIDE
     Indication: PROSTATE CANCER
     Dosage: STRENGTH: 40 MG
     Route: 048
     Dates: start: 20140607, end: 20140903
  8. VITAMIN C [Concomitant]
     Active Substance: ASCORBIC ACID
  9. ASPIRIN. [Concomitant]
     Active Substance: ASPIRIN
  10. SELENIUM [Concomitant]
     Active Substance: SELENIUM
  11. LASIX [Concomitant]
     Active Substance: FUROSEMIDE
  12. MULTIVITAMINS [Concomitant]
     Active Substance: VITAMINS
  13. POTASSIUM [Concomitant]
     Active Substance: POTASSIUM

REACTIONS (6)
  - Ear pain [Recovering/Resolving]
  - Glossitis [Recovering/Resolving]
  - Mouth haemorrhage [Recovering/Resolving]
  - Weight decreased [Recovering/Resolving]
  - Haematoma [Recovering/Resolving]
  - Fatigue [Unknown]

NARRATIVE: CASE EVENT DATE: 20140716
